FAERS Safety Report 15130670 (Version 1)
Quarter: 2018Q3

REPORT INFORMATION
  Report Type: Other
  Country: CA (occurrence: CA)
  Receive Date: 20180711
  Receipt Date: 20180711
  Transmission Date: 20181010
  Serious: Yes (Other)
  Sender: FDA-Public Use
  Company Number: CA-APOTEX-2018AP016888

PATIENT
  Age: 30 Year
  Sex: Female

DRUGS (1)
  1. PENTOXIFYLLINE SR [Suspect]
     Active Substance: PENTOXIFYLLINE
     Indication: SKIN DISCOLOURATION
     Dosage: 400 MG, 3 EVERY 1 DAY
     Route: 048

REACTIONS (1)
  - Retinal haemorrhage [Recovered/Resolved]
